FAERS Safety Report 20310574 (Version 2)
Quarter: 2022Q1

REPORT INFORMATION
  Report Type: Other
  Country: KR (occurrence: None)
  Receive Date: 20220107
  Receipt Date: 20220111
  Transmission Date: 20220424
  Serious: Yes (Hospitalization)
  Sender: FDA-Public Use
  Company Number: KR-ROCHE-2994501

PATIENT
  Age: 73 Year
  Sex: Male
  Weight: 61 kg

DRUGS (16)
  1. ATEZOLIZUMAB [Suspect]
     Active Substance: ATEZOLIZUMAB
     Indication: Small cell lung cancer extensive stage
     Route: 042
     Dates: start: 20211104, end: 20211104
  2. ATEZOLIZUMAB [Suspect]
     Active Substance: ATEZOLIZUMAB
     Indication: Lung neoplasm malignant
     Route: 042
     Dates: start: 20211125, end: 20211125
  3. ATEZOLIZUMAB [Suspect]
     Active Substance: ATEZOLIZUMAB
     Route: 042
     Dates: start: 20211216, end: 20211216
  4. ETOPOSIDE [Suspect]
     Active Substance: ETOPOSIDE
     Indication: Small cell lung cancer extensive stage
     Route: 042
     Dates: start: 20211104, end: 20211106
  5. ETOPOSIDE [Suspect]
     Active Substance: ETOPOSIDE
     Route: 042
     Dates: start: 20211104
  6. ETOPOSIDE [Suspect]
     Active Substance: ETOPOSIDE
     Route: 042
     Dates: start: 20211105
  7. ETOPOSIDE [Suspect]
     Active Substance: ETOPOSIDE
     Route: 042
     Dates: start: 20211106
  8. ETOPOSIDE [Suspect]
     Active Substance: ETOPOSIDE
     Route: 042
     Dates: start: 20211125
  9. ETOPOSIDE [Suspect]
     Active Substance: ETOPOSIDE
     Route: 042
     Dates: start: 20211126
  10. ETOPOSIDE [Suspect]
     Active Substance: ETOPOSIDE
     Route: 042
     Dates: start: 20211126
  11. CARBOPLATIN [Suspect]
     Active Substance: CARBOPLATIN
     Indication: Small cell lung cancer extensive stage
     Route: 042
     Dates: start: 20211104, end: 20211104
  12. CARBOPLATIN [Suspect]
     Active Substance: CARBOPLATIN
     Route: 042
     Dates: start: 20211104
  13. CARBOPLATIN [Suspect]
     Active Substance: CARBOPLATIN
     Route: 042
     Dates: start: 20211125
  14. ENOXAPARIN SODIUM [Concomitant]
     Active Substance: ENOXAPARIN SODIUM
     Route: 058
     Dates: start: 20211103, end: 20211103
  15. SPIRIVA [Concomitant]
     Active Substance: TIOTROPIUM BROMIDE MONOHYDRATE
     Indication: Chronic obstructive pulmonary disease
     Route: 048
     Dates: start: 20211103
  16. SYMBICORT [Concomitant]
     Active Substance: BUDESONIDE\FORMOTEROL FUMARATE DIHYDRATE
     Indication: Chronic obstructive pulmonary disease
     Route: 048
     Dates: start: 20211103

REACTIONS (2)
  - Neutropenia [Recovered/Resolved]
  - C-reactive protein increased [Recovered/Resolved]

NARRATIVE: CASE EVENT DATE: 20211116
